FAERS Safety Report 7337746-1 (Version None)
Quarter: 2011Q1

REPORT INFORMATION
  Report Type: 
  Country: None (occurrence: None)
  Receive Date: 20110308
  Receipt Date: 20110302
  Transmission Date: 20110831
  Serious: Yes (Other)
  Sender: FDA-Public Use
  Company Number: US-AMGEN-USASP2011005209

PATIENT
  Age: 78 Year
  Sex: Male
  Weight: 99.32 kg

DRUGS (3)
  1. NPLATE [Suspect]
     Indication: IDIOPATHIC THROMBOCYTOPENIC PURPURA
     Dosage: QW
     Route: 058
     Dates: start: 20090814
  2. NPLATE [Suspect]
  3. NPLATE [Suspect]

REACTIONS (2)
  - BIOPSY BONE MARROW ABNORMAL [None]
  - BONE MARROW RETICULIN FIBROSIS [None]
